FAERS Safety Report 9356092 (Version 1)
Quarter: 2013Q2

REPORT INFORMATION
  Report Type: Spontaneous
  Country: US (occurrence: US)
  Receive Date: 20130619
  Receipt Date: 20130619
  Transmission Date: 20140414
  Serious: Yes (Other)
  Sender: FDA-Public Use
  Company Number: US-GLAXOSMITHKLINE-A1027430A

PATIENT
  Age: 60 Year
  Sex: Female

DRUGS (2)
  1. WALGREENS NICOTINE TRANSDERMAL SYSTEM PATCH CLEAR, 14MG [Suspect]
     Indication: EX-TOBACCO USER
     Dosage: 14MG UNKNOWN
     Route: 065
     Dates: start: 201306
  2. WALGREENS NICOTINE TRANSDERMAL SYSTEM PATCH CLEAR, 21MG [Suspect]
     Indication: EX-TOBACCO USER
     Dosage: 21MG UNKNOWN
     Route: 065
     Dates: start: 2009

REACTIONS (4)
  - Myocardial infarction [Recovered/Resolved]
  - Withdrawal syndrome [Unknown]
  - Drug administration error [Unknown]
  - Therapeutic response decreased [Unknown]
